FAERS Safety Report 8363843-8 (Version None)
Quarter: 2012Q2

REPORT INFORMATION
  Report Type: 
  Country: None (occurrence: None)
  Receive Date: 20120514
  Receipt Date: 20120426
  Transmission Date: 20120825
  Serious: Yes (Other)
  Sender: FDA-Public Use
  Company Number: US-1192028

PATIENT
  Age: 91 Year
  Sex: Female

DRUGS (4)
  1. GENTAMICIN SULFATE [Suspect]
     Indication: ANTIBIOTIC PROPHYLAXIS
     Dosage: (AFTER ENDOPHTHALMITIS RECURRENCE: QID OPHTHALMIC)
     Route: 047
  2. GENTAMICIN SULFATE [Suspect]
     Indication: ENDOPHTHALMITIS
     Dosage: (AFTER ENDOPHTHALMITIS RECURRENCE: QID OPHTHALMIC)
     Route: 047
  3. ERYTHROMYCIN [Suspect]
     Indication: ANTIBIOTIC PROPHYLAXIS
     Dosage: (AT THE TIME OF ENDOPHTHALMITIS: ONCE A DAY (OPHTHALMIC)
     Route: 047
  4. PREDNISOLONE ACETATE [Concomitant]

REACTIONS (7)
  - COMPLICATIONS OF TRANSPLANT SURGERY [None]
  - VITRITIS [None]
  - ENDOPHTHALMITIS [None]
  - VISUAL ACUITY REDUCED [None]
  - EYE PAIN [None]
  - CONJUNCTIVAL HYPERAEMIA [None]
  - CORNEAL DEGENERATION [None]
